FAERS Safety Report 20722703 (Version 1)
Quarter: 2022Q2

REPORT INFORMATION
  Report Type: Report from Study
  Country: CA (occurrence: CA)
  Receive Date: 20220419
  Receipt Date: 20220419
  Transmission Date: 20220721
  Serious: Yes (Other)
  Sender: FDA-Public Use
  Company Number: CA-JNJFOC-20220422618

PATIENT
  Age: 25 Year
  Sex: Female

DRUGS (2)
  1. JANSSEN COVID-19 VACCINE [Suspect]
     Active Substance: AD26.COV2.S
     Indication: Immunisation
     Route: 065
  2. REMICADE [Suspect]
     Active Substance: INFLIXIMAB
     Indication: Colitis ulcerative
     Route: 041

REACTIONS (4)
  - Vaccination failure [Unknown]
  - Suspected COVID-19 [Unknown]
  - Feeling abnormal [Unknown]
  - Abdominal pain [Unknown]

NARRATIVE: CASE EVENT DATE: 20220409
